FAERS Safety Report 4932450-9 (Version None)
Quarter: 2006Q1

REPORT INFORMATION
  Report Type: 
  Country: None (occurrence: None)
  Receive Date: 20060303
  Receipt Date: 20050328
  Transmission Date: 20060701
  Serious: Yes (Hospitalization, Disabling, Other)
  Sender: FDA-Public Use
  Company Number: US-MERCK-0503USA05064

PATIENT
  Age: 62 Year
  Sex: Male
  Weight: 93 kg

DRUGS (16)
  1. VIOXX [Suspect]
     Route: 048
     Dates: start: 20020901, end: 20040701
  2. NITROGLYCERIN [Concomitant]
     Route: 065
  3. LASIX [Concomitant]
     Route: 065
  4. GLUCOTROL [Concomitant]
     Indication: DIABETES MELLITUS
     Route: 065
  5. DIOVAN [Concomitant]
     Route: 065
  6. FLOMAX [Concomitant]
     Route: 065
  7. COUMADIN [Concomitant]
     Route: 065
  8. DOXYCYCLINE [Concomitant]
     Route: 065
  9. VALIUM [Concomitant]
     Route: 065
  10. COREG [Concomitant]
     Route: 065
  11. TRICOR [Concomitant]
     Route: 065
  12. VICODIN [Concomitant]
     Route: 065
  13. PRAVACHOL [Concomitant]
     Route: 065
  14. Q-10 [Concomitant]
     Route: 065
  15. PROSCAR [Concomitant]
     Route: 048
  16. DIGOXIN [Concomitant]
     Route: 065

REACTIONS (19)
  - ACUTE MYOCARDIAL INFARCTION [None]
  - ATELECTASIS [None]
  - CARDIAC FAILURE [None]
  - CLOSED HEAD INJURY [None]
  - CORONARY ARTERY DISEASE [None]
  - DYSPHONIA [None]
  - FALL [None]
  - HYPERCHOLESTEROLAEMIA [None]
  - INTRACARDIAC THROMBUS [None]
  - ISCHAEMIC CARDIOMYOPATHY [None]
  - MITRAL VALVE INCOMPETENCE [None]
  - MUSCLE SPASMS [None]
  - PLEURAL EFFUSION [None]
  - RENAL FAILURE CHRONIC [None]
  - ROTATOR CUFF SYNDROME [None]
  - SKIN LACERATION [None]
  - SPLENOMEGALY [None]
  - VENTRICULAR DYSFUNCTION [None]
  - VENTRICULAR TACHYCARDIA [None]
